FAERS Safety Report 26057947 (Version 1)
Quarter: 2025Q4

REPORT INFORMATION
  Report Type: Spontaneous
  Country: US (occurrence: US)
  Receive Date: 20251118
  Receipt Date: 20251118
  Transmission Date: 20260117
  Serious: Yes (Hospitalization)
  Sender: Onesource Specialty Pharma
  Company Number: US-STRIDES ARCOLAB LIMITED-2025OS001207

PATIENT
  Age: 62 Year
  Sex: Male

DRUGS (1)
  1. SUMATRIPTAN [Suspect]
     Active Substance: SUMATRIPTAN
     Indication: Headache
     Dosage: UNK
     Route: 042

REACTIONS (7)
  - Paraesthesia [None]
  - Dyschromatopsia [None]
  - Dyspnoea [None]
  - Flushing [None]
  - Burning sensation [None]
  - Chest discomfort [None]
  - Incorrect route of product administration [Unknown]
